FAERS Safety Report 6462264-2 (Version None)
Quarter: 2009Q4

REPORT INFORMATION
  Report Type: 
  Country: None (occurrence: None)
  Receive Date: 20091130
  Receipt Date: 20091028
  Transmission Date: 20100525
  Serious: No
  Sender: FDA-Public Use
  Company Number: US-BAYER-200937616NA

PATIENT
  Sex: Female

DRUGS (1)
  1. AVELOX [Suspect]
     Indication: VAGINITIS BACTERIAL
     Dates: start: 20091001

REACTIONS (1)
  - THERAPEUTIC RESPONSE UNEXPECTED [None]
